FAERS Safety Report 4531638-9 (Version None)
Quarter: 2004Q4

REPORT INFORMATION
  Report Type: 
  Country: None (occurrence: None)
  Receive Date: 20041217
  Receipt Date: 20041217
  Transmission Date: 20050328
  Serious: Yes (Congenital Anomaly, Other)
  Sender: FDA-Public Use
  Company Number: None

PATIENT
  Age: 23 Year
  Sex: Male
  Weight: 81.6475 kg

DRUGS (3)
  1. PAROXETINE HCL [Suspect]
     Indication: GENERALISED ANXIETY DISORDER
     Dosage: 30 MG DAILY, BEDTIME ORAL
     Route: 048
     Dates: start: 20030301, end: 20041019
  2. CLONAZEPAM [Concomitant]
  3. AZITHROMYCIN [Concomitant]

REACTIONS (5)
  - COGNITIVE DISORDER [None]
  - COMMUNICATION DISORDER [None]
  - MEMORY IMPAIRMENT [None]
  - MENTAL IMPAIRMENT [None]
  - THINKING ABNORMAL [None]
